FAERS Safety Report 4338294-3 (Version None)
Quarter: 2004Q2

REPORT INFORMATION
  Report Type: 
  Country: None (occurrence: None)
  Receive Date: 20040409
  Receipt Date: 30040329
  Transmission Date: 20050107
  Serious: Yes (Death, Hospitalization)
  Sender: FDA-Public Use
  Company Number: HQWYE265613JAN04

PATIENT
  Age: 58 Year
  Sex: Male

DRUGS (4)
  1. TAZOCIN (PIPERACILLIN/TAZOBACTAM ) [Suspect]
     Indication: PNEUMONIA
     Dosage: 4.5 GRAMS DAILY INTRAVENOUS
     Route: 042
     Dates: start: 20040108, end: 20040108
  2. TAZOCIN (PIPERACILLIN/TAZOBACTAM ) [Suspect]
     Indication: PNEUMONITIS
     Dosage: 4.5 GRAMS DAILY INTRAVENOUS
     Route: 042
     Dates: start: 20040108, end: 20040108
  3. AMINOPHYLLINE [Concomitant]
  4. GLUTAHIONE (GLUTAHIONE) [Concomitant]

REACTIONS (13)
  - BLOOD PRESSURE DECREASED [None]
  - CHILLS [None]
  - CHROMATURIA [None]
  - CONCOMITANT DISEASE PROGRESSION [None]
  - CONDITION AGGRAVATED [None]
  - DYSPNOEA [None]
  - HEPATIC FUNCTION ABNORMAL [None]
  - JAUNDICE [None]
  - LOSS OF CONSCIOUSNESS [None]
  - MULTI-ORGAN FAILURE [None]
  - PROTEIN URINE PRESENT [None]
  - RED BLOOD CELLS URINE POSITIVE [None]
  - WHEEZING [None]
